FAERS Safety Report 7012270 (Version 1)
Quarter: 2020Q3

REPORT INFORMATION
  Report Type: Report from Study
  Country: US (occurrence: US)
  Receive Date: 20090605
  Receipt Date: 20090605
  Transmission Date: 20201104
  Serious: Yes (Death, Hospitalization)
  Sender: FDA-Public Use
  Company Number: US-ROCHE-635989

PATIENT
  Age: 84 Year
  Sex: Female

DRUGS (1)
  1. IBANDRONIC ACID. [Suspect]
     Active Substance: IBANDRONIC ACID
     Indication: OSTEOPOROSIS
     Route: 048
     Dates: start: 2005, end: 20090518

REACTIONS (4)
  - Fall [Unknown]
  - Hip fracture [Fatal]
  - Leg amputation [Unknown]
  - Thrombosis [Unknown]

NARRATIVE: CASE EVENT DATE: 20090201
